FAERS Safety Report 4764707-9 (Version None)
Quarter: 2005Q3

REPORT INFORMATION
  Report Type: 
  Country: None (occurrence: None)
  Receive Date: 20050909
  Receipt Date: 20050311
  Transmission Date: 20060218
  Serious: Yes (Hospitalization, Disabling, Other)
  Sender: FDA-Public Use
  Company Number: US-MERCK-0503USA02636

PATIENT
  Age: 55 Year
  Sex: Male
  Weight: 90 kg

DRUGS (11)
  1. VIOXX [Suspect]
     Indication: RHEUMATOID ARTHRITIS
     Route: 048
     Dates: start: 19991118, end: 20020801
  2. INJECTABLE GOLD (UNSPECIFIED) [Concomitant]
     Route: 065
  3. METHOTREXATE [Concomitant]
     Indication: RHEUMATOID ARTHRITIS
     Route: 065
     Dates: start: 19981123
  4. CELEBREX [Concomitant]
     Route: 048
  5. ZOLOFT [Concomitant]
     Route: 065
  6. SOLGANAL [Concomitant]
     Route: 065
  7. XANAX [Concomitant]
     Indication: GENERALISED ANXIETY DISORDER
     Route: 065
     Dates: start: 19930910
  8. XANAX [Concomitant]
     Route: 048
  9. PAXIL [Concomitant]
     Indication: DEPRESSION
     Route: 065
     Dates: start: 19950719
  10. PREDNISONE [Concomitant]
     Route: 048
  11. ASPIRIN [Concomitant]
     Route: 054

REACTIONS (31)
  - ANGINA PECTORIS [None]
  - BACK INJURY [None]
  - BLOOD CREATININE INCREASED [None]
  - CARDIAC FAILURE CONGESTIVE [None]
  - CARDIOGENIC SHOCK [None]
  - CHRONIC OBSTRUCTIVE PULMONARY DISEASE [None]
  - CONFUSIONAL STATE [None]
  - CORONARY ARTERY DISEASE [None]
  - FAECES DISCOLOURED [None]
  - GROIN ABSCESS [None]
  - HAEMORRHOIDS [None]
  - HYPERCHOLESTEROLAEMIA [None]
  - HYPOALBUMINAEMIA [None]
  - HYPOTENSION [None]
  - HYPOXIA [None]
  - JOINT SPRAIN [None]
  - LOBAR PNEUMONIA [None]
  - MITRAL VALVE INCOMPETENCE [None]
  - MYCOPLASMA SEROLOGY POSITIVE [None]
  - MYOCARDIAL INFARCTION [None]
  - OTITIS EXTERNA [None]
  - OVERDOSE [None]
  - PLEURAL EFFUSION [None]
  - PNEUMONIA [None]
  - PYOTHORAX [None]
  - SEBORRHOEIC DERMATITIS [None]
  - SUBCLAVIAN ARTERY THROMBOSIS [None]
  - TOE DEFORMITY [None]
  - UPPER GASTROINTESTINAL HAEMORRHAGE [None]
  - VIRAEMIA [None]
  - VOMITING [None]
